FAERS Safety Report 10144388 (Version 1)
Quarter: 2014Q2

REPORT INFORMATION
  Report Type: Spontaneous
  Country: IT (occurrence: IT)
  Receive Date: 20140430
  Receipt Date: 20140430
  Transmission Date: 20141212
  Serious: Yes (Other)
  Sender: FDA-Public Use
  Company Number: IT-MYLANLABS-2014S1009183

PATIENT
  Age: 55 Year
  Sex: Female

DRUGS (6)
  1. PACLITAXEL [Suspect]
     Indication: BREAST CANCER
     Route: 042
     Dates: start: 20140123
  2. ADRIBLASTINA [Concomitant]
     Indication: BREAST CANCER
     Route: 042
     Dates: start: 20140123, end: 20140123
  3. ALOXI [Concomitant]
     Indication: PROPHYLAXIS OF NAUSEA AND VOMITING
     Route: 042
     Dates: start: 20140123, end: 20140123
  4. TRIMETON /00072502/ [Concomitant]
     Indication: PRODUCT USED FOR UNKNOWN INDICATION
     Route: 042
     Dates: start: 20140123, end: 20140123
  5. SOLU CORTEF [Concomitant]
     Indication: PRODUCT USED FOR UNKNOWN INDICATION
     Route: 042
     Dates: start: 20140123, end: 20140123
  6. RANIDIL [Concomitant]
     Indication: PRODUCT USED FOR UNKNOWN INDICATION
     Route: 042
     Dates: start: 20140123, end: 20140123

REACTIONS (3)
  - Hypotension [Recovered/Resolved]
  - Dysphagia [Recovered/Resolved]
  - Visual acuity reduced [Recovered/Resolved]
